FAERS Safety Report 6500444-8 (Version None)
Quarter: 2009Q4

REPORT INFORMATION
  Report Type: 
  Country: None (occurrence: None)
  Receive Date: 20091216
  Receipt Date: 20091207
  Transmission Date: 20100525
  Serious: Yes (Other)
  Sender: FDA-Public Use
  Company Number: DE-ROCHE-666403

PATIENT
  Sex: Female
  Weight: 79 kg

DRUGS (3)
  1. AVASTIN [Suspect]
     Route: 042
     Dates: start: 20070822, end: 20090818
  2. CAPECITABINE [Suspect]
     Dosage: DAY 1-14 OF A 21 DAYS CYCLE
     Route: 048
     Dates: start: 20080908, end: 20090831
  3. VERGENTAN [Concomitant]
     Indication: ANTIEMETIC SUPPORTIVE CARE
     Route: 048
     Dates: start: 20090818, end: 20090831

REACTIONS (2)
  - OESOPHAGEAL VARICES HAEMORRHAGE [None]
  - VARICES OESOPHAGEAL [None]
